FAERS Safety Report 8394381-4 (Version None)
Quarter: 2012Q2

REPORT INFORMATION
  Report Type: 
  Country: None (occurrence: None)
  Receive Date: 20120530
  Receipt Date: 20120529
  Transmission Date: 20120825
  Serious: Yes (Life-Threatening, Hospitalization)
  Sender: FDA-Public Use
  Company Number: DE-ABBOTT-12P-062-0924487-00

PATIENT
  Sex: Female
  Weight: 86 kg

DRUGS (6)
  1. METHOTREXATE [Concomitant]
     Route: 058
     Dates: start: 20000201, end: 20050601
  2. HUMIRA [Suspect]
     Indication: PSORIATIC ARTHROPATHY
     Route: 058
     Dates: start: 20080523, end: 20111006
  3. PREDNISOLONE [Concomitant]
     Indication: PRODUCT USED FOR UNKNOWN INDICATION
     Route: 048
     Dates: start: 20061220, end: 20111006
  4. ENBREL [Concomitant]
     Indication: PRODUCT USED FOR UNKNOWN INDICATION
     Dosage: 2X 25 MG
     Dates: start: 20061201, end: 20080501
  5. IBUPROFEN [Concomitant]
     Indication: PRODUCT USED FOR UNKNOWN INDICATION
  6. METHOTREXATE [Concomitant]
     Indication: PRODUCT USED FOR UNKNOWN INDICATION
     Route: 050
     Dates: start: 20061201

REACTIONS (3)
  - TONGUE NEOPLASM MALIGNANT STAGE UNSPECIFIED [None]
  - LYMPHADENOPATHY [None]
  - INTERVERTEBRAL DISC PROTRUSION [None]
